FAERS Safety Report 11177365 (Version 1)
Quarter: 2015Q2

REPORT INFORMATION
  Report Type: Spontaneous
  Country: US (occurrence: US)
  Receive Date: 20150610
  Receipt Date: 20150610
  Transmission Date: 20150821
  Serious: No
  Sender: FDA-Public Use
  Company Number: US-SHIRE-US201505383

PATIENT
  Sex: Male
  Weight: 23.13 kg

DRUGS (1)
  1. VYVANSE [Suspect]
     Active Substance: LISDEXAMFETAMINE DIMESYLATE
     Indication: ATTENTION DEFICIT/HYPERACTIVITY DISORDER
     Dosage: 20 MG, 1X/DAY:QD, DAILY
     Route: 048
     Dates: start: 20150514

REACTIONS (2)
  - Product quality issue [Unknown]
  - Affect lability [Recovering/Resolving]

NARRATIVE: CASE EVENT DATE: 2015
